FAERS Safety Report 5199607-6 (Version None)
Quarter: 2007Q1

REPORT INFORMATION
  Report Type: 
  Country: None (occurrence: None)
  Receive Date: 20070105
  Receipt Date: 20061227
  Transmission Date: 20070707
  Serious: Yes (Other)
  Sender: FDA-Public Use
  Company Number: 2006UW28603

PATIENT
  Age: 10 Year
  Sex: Male
  Weight: 36.3 kg

DRUGS (3)
  1. SEROQUEL [Suspect]
     Dosage: 25 MG IN AM AND 100 MG PM
     Route: 048
     Dates: start: 20060901
  2. KLONOPIN [Concomitant]
  3. CONCERTA [Concomitant]
     Indication: ATTENTION DEFICIT/HYPERACTIVITY DISORDER

REACTIONS (8)
  - ABNORMAL BEHAVIOUR [None]
  - AGGRESSION [None]
  - AGITATION [None]
  - ILL-DEFINED DISORDER [None]
  - IRRITABILITY [None]
  - LETHARGY [None]
  - PALLOR [None]
  - SOMNOLENCE [None]
